FAERS Safety Report 5518508-4 (Version None)
Quarter: 2007Q4

REPORT INFORMATION
  Report Type: 
  Country: None (occurrence: None)
  Receive Date: 20071115
  Receipt Date: 20071105
  Transmission Date: 20080405
  Serious: Yes (Other)
  Sender: FDA-Public Use
  Company Number: CH-PFIZER INC-2007072198

PATIENT

DRUGS (1)
  1. SUTENT [Suspect]
     Indication: ANGIOSARCOMA

REACTIONS (2)
  - ASCITES [None]
  - HEPATIC STEATOSIS [None]
